FAERS Safety Report 15900583 (Version 1)
Quarter: 2019Q1

REPORT INFORMATION
  Report Type: Spontaneous
  Country: US (occurrence: US)
  Receive Date: 20190131
  Receipt Date: 20190131
  Transmission Date: 20190417
  Serious: Yes (Life-Threatening)
  Sender: FDA-Public Use
  Company Number: None

PATIENT
  Age: 67 Year
  Sex: Male

DRUGS (1)
  1. PROTAMINE SULFATE. [Suspect]
     Active Substance: PROTAMINE SULFATE
     Indication: CARDIAC ABLATION
     Dosage: ?          OTHER FREQUENCY:2X: 25MG, THEN10MG;?
     Route: 042
     Dates: start: 20190115, end: 20190115

REACTIONS (3)
  - Chills [None]
  - Blood pressure decreased [None]
  - Post procedural complication [None]

NARRATIVE: CASE EVENT DATE: 20190115
